FAERS Safety Report 24920269 (Version 1)
Quarter: 2025Q1

REPORT INFORMATION
  Report Type: Report from Study
  Country: US (occurrence: US)
  Receive Date: 20250204
  Receipt Date: 20250204
  Transmission Date: 20250409
  Serious: No
  Sender: EXELIXIS
  Company Number: US-EXELIXIS-CABO-24073508

PATIENT
  Sex: Male

DRUGS (1)
  1. CABOMETYX [Suspect]
     Active Substance: CABOZANTINIB S-MALATE
     Indication: Renal cancer
     Dosage: 40 MG, QD
     Route: 048

REACTIONS (15)
  - Paranasal sinus hypersecretion [Recovering/Resolving]
  - Glossodynia [Recovering/Resolving]
  - Oropharyngeal pain [Recovering/Resolving]
  - Oral pain [Recovering/Resolving]
  - Hair colour changes [Recovering/Resolving]
  - Blood pressure increased [Unknown]
  - Pain in extremity [Recovering/Resolving]
  - Constipation [Recovering/Resolving]
  - Decreased appetite [Recovering/Resolving]
  - Nausea [Recovering/Resolving]
  - Dysphonia [Recovering/Resolving]
  - Fatigue [Recovering/Resolving]
  - Dry throat [Unknown]
  - Upper respiratory tract infection [Unknown]
  - Blood cholesterol increased [Unknown]
